FAERS Safety Report 4659903-5 (Version None)
Quarter: 2005Q2

REPORT INFORMATION
  Report Type: 
  Country: None (occurrence: None)
  Receive Date: 20050510
  Receipt Date: 20050427
  Transmission Date: 20051028
  Serious: Yes (Hospitalization, Other)
  Sender: FDA-Public Use
  Company Number: 2005066834

PATIENT
  Sex: Female

DRUGS (12)
  1. BEXTRA [Suspect]
     Indication: DYSMENORRHOEA
     Dosage: 10 MG (10 MG, 1 AS NECESSARY)
     Route: 048
     Dates: start: 20020501, end: 20040519
  2. BEXTRA [Suspect]
     Indication: IUCD COMPLICATION
     Dosage: 10 MG (10 MG, 1 AS NECESSARY)
     Route: 048
     Dates: start: 20020501, end: 20040519
  3. CELEBREX [Suspect]
     Indication: DYSMENORRHOEA
     Dosage: 200 MG (200 MG, 1 AS NECESSARY), ORAL
     Route: 048
     Dates: start: 20020501, end: 20040519
  4. CELEBREX [Suspect]
     Indication: IUCD COMPLICATION
     Dosage: 200 MG (200 MG, 1 AS NECESSARY), ORAL
     Route: 048
     Dates: start: 20020501, end: 20040519
  5. NARINE REPETABS            (LORATADINE, PSEUDOEPHEDRINE SULFATE) [Suspect]
     Indication: MULTIPLE ALLERGIES
     Dosage: ORAL
     Route: 048
     Dates: start: 19980101, end: 20040519
  6. TRIAMCINOLONE ACETONIDE [Suspect]
     Indication: MULTIPLE ALLERGIES
     Dosage: NASAL
     Route: 045
     Dates: start: 19980101, end: 20040519
  7. LEVOTHYROXINE SODIUM [Suspect]
     Indication: THYROIDITIS
     Dates: end: 20040519
  8. VENLAFAXINE HCL [Suspect]
     Indication: DEPRESSION
     Dosage: 75 M (75 MG, 1 IN 1 D), ORAL
     Route: 048
     Dates: end: 20040519
  9. ATOMOXETINE HYDROCHLORIDE    (ATOMOXETINE HYDROCHLORIDE) [Concomitant]
  10. SERETIDE MITE (FLUTICASONE PROPIONATE, SALMETEROL XINAFOATE) [Concomitant]
  11. BENZONATATE [Concomitant]
  12. DOXYCYCLINE [Concomitant]

REACTIONS (16)
  - ATTENTION DEFICIT/HYPERACTIVITY DISORDER [None]
  - CARDIOMEGALY [None]
  - CEREBROVASCULAR ACCIDENT [None]
  - DEPRESSION [None]
  - DYSPNOEA [None]
  - FLUID RETENTION [None]
  - GASTROINTESTINAL HAEMORRHAGE [None]
  - HEPATITIS [None]
  - INTESTINAL ULCER [None]
  - MOUTH ULCERATION [None]
  - OVARIAN DISORDER [None]
  - PHLEBOTHROMBOSIS [None]
  - PULMONARY OEDEMA [None]
  - SLEEP APNOEA SYNDROME [None]
  - TONGUE ULCERATION [None]
  - VOMITING [None]
